FAERS Safety Report 13237857 (Version 1)
Quarter: 2017Q1

REPORT INFORMATION
  Report Type: Report from Study
  Country: None (occurrence: US)
  Receive Date: 20170216
  Receipt Date: 20170216
  Transmission Date: 20170428
  Serious: Yes (Other)
  Sender: FDA-Public Use
  Company Number: US-ABBVIE-16K-163-1817239-00

PATIENT
  Age: 42 Year
  Sex: Female

DRUGS (2)
  1. HUMIRA [Suspect]
     Active Substance: ADALIMUMAB
     Indication: PSORIASIS
     Route: 058
     Dates: start: 2012, end: 201611
  2. HUMIRA [Suspect]
     Active Substance: ADALIMUMAB
     Route: 058
     Dates: start: 201612

REACTIONS (4)
  - Nephrolithiasis [Unknown]
  - Bladder dysfunction [Recovering/Resolving]
  - Post procedural complication [Recovering/Resolving]
  - Arthralgia [Unknown]

NARRATIVE: CASE EVENT DATE: 201512
